FAERS Safety Report 5832733-4 (Version None)
Quarter: 2008Q3

REPORT INFORMATION
  Report Type: 
  Country: None (occurrence: None)
  Receive Date: 20080804
  Receipt Date: 20080725
  Transmission Date: 20090109
  Serious: Yes (Other)
  Sender: FDA-Public Use
  Company Number: JP-PFIZER INC-2008026486

PATIENT
  Sex: Male

DRUGS (3)
  1. CABASER [Suspect]
     Indication: PARKINSON'S DISEASE
     Route: 048
     Dates: start: 20060614, end: 20070704
  2. ALL OTHER THERAPEUTIC PRODUCTS [Concomitant]
  3. EC DOPARL [Concomitant]
     Route: 048

REACTIONS (1)
  - HYPOGLYCAEMIA [None]
